FAERS Safety Report 5833871-2 (Version None)
Quarter: 2008Q3

REPORT INFORMATION
  Report Type: 
  Country: None (occurrence: None)
  Receive Date: 20080805
  Receipt Date: 20080725
  Transmission Date: 20090109
  Serious: Yes (Other)
  Sender: FDA-Public Use
  Company Number: FR-ROCHE-571153

PATIENT
  Sex: Male
  Weight: 73 kg

DRUGS (9)
  1. VALIUM [Suspect]
     Indication: ANXIETY
     Route: 048
     Dates: start: 20080526
  2. VALIUM [Suspect]
     Dosage: TREATMENT DECREASED FOR 2-3 DAYS.
     Route: 048
  3. VALIUM [Suspect]
     Route: 048
     Dates: end: 20080615
  4. MAGNE B6 [Concomitant]
  5. MOCLAMINE [Concomitant]
     Route: 048
     Dates: start: 20080501, end: 20080615
  6. PRAZEPAM [Concomitant]
     Route: 048
     Dates: start: 20070301, end: 20080430
  7. PRAZEPAM [Concomitant]
     Route: 048
  8. STABLON [Concomitant]
     Route: 048
     Dates: start: 20070301, end: 20080430
  9. STABLON [Concomitant]
     Route: 048

REACTIONS (7)
  - ALCOHOL POISONING [None]
  - ANXIETY [None]
  - BALANCE DISORDER [None]
  - CONFUSIONAL STATE [None]
  - DEPERSONALISATION [None]
  - FATIGUE [None]
  - ILL-DEFINED DISORDER [None]
